FAERS Safety Report 17267563 (Version 1)
Quarter: 2020Q1

REPORT INFORMATION
  Report Type: Spontaneous
  Country: US (occurrence: US)
  Receive Date: 20200114
  Receipt Date: 20200114
  Transmission Date: 20200409
  Serious: Yes (Other)
  Sender: FDA-Public Use
  Company Number: US-TEVA-2020-US-1166192

PATIENT
  Sex: Female

DRUGS (1)
  1. DIAZEPAM. [Suspect]
     Active Substance: DIAZEPAM
     Route: 065
     Dates: start: 20200103

REACTIONS (7)
  - Dizziness [Unknown]
  - Product prescribing error [Unknown]
  - Nausea [Unknown]
  - Movement disorder [Unknown]
  - Asthenia [Unknown]
  - Depressed level of consciousness [Unknown]
  - Headache [Unknown]

NARRATIVE: CASE EVENT DATE: 202001
